FAERS Safety Report 9696465 (Version 2)
Quarter: 2013Q4

REPORT INFORMATION
  Report Type: Spontaneous
  Country: JP (occurrence: JP)
  Receive Date: 20131119
  Receipt Date: 20131119
  Transmission Date: 20140711
  Serious: Yes (Other)
  Sender: FDA-Public Use
  Company Number: JP-PFIZER INC-2013330063

PATIENT
  Sex: Male

DRUGS (1)
  1. AMLODIN [Suspect]
     Dosage: 10 MG, DAILY

REACTIONS (1)
  - Mental impairment [Unknown]
